FAERS Safety Report 5738254-1 (Version None)
Quarter: 2008Q2

REPORT INFORMATION
  Report Type: 
  Country: None (occurrence: None)
  Receive Date: 20080514
  Receipt Date: 20080502
  Transmission Date: 20081010
  Serious: Yes (Other)
  Sender: FDA-Public Use
  Company Number: CA-PFIZER INC-2008039631

PATIENT
  Age: 54 Year
  Sex: Female

DRUGS (2)
  1. LYRICA [Suspect]
     Indication: FIBROMYALGIA
     Route: 048
     Dates: start: 20080401, end: 20080428
  2. ANTIDEPRESSANTS [Concomitant]

REACTIONS (8)
  - ABNORMAL BEHAVIOUR [None]
  - DIPLOPIA [None]
  - FALL [None]
  - GAIT DISTURBANCE [None]
  - HALLUCINATION [None]
  - IMPAIRED WORK ABILITY [None]
  - MEMORY IMPAIRMENT [None]
  - ROAD TRAFFIC ACCIDENT [None]
